FAERS Safety Report 14917516 (Version 1)
Quarter: 2018Q2

REPORT INFORMATION
  Report Type: Spontaneous
  Country: US (occurrence: US)
  Receive Date: 20180521
  Receipt Date: 20180521
  Transmission Date: 20180711
  Serious: No
  Sender: FDA-Public Use
  Company Number: US-TEVA-815189ACC

PATIENT
  Sex: Female

DRUGS (1)
  1. KELNOR 1/35 [Suspect]
     Active Substance: ETHINYL ESTRADIOL\ETHYNODIOL DIACETATE
     Indication: CONTRACEPTION
     Dosage: DOSE STRENGTH: 1MG/0.035 MG

REACTIONS (4)
  - Menorrhagia [Not Recovered/Not Resolved]
  - Dysfunctional uterine bleeding [Unknown]
  - Metrorrhagia [Not Recovered/Not Resolved]
  - Product physical issue [Unknown]

NARRATIVE: CASE EVENT DATE: 201708
